FAERS Safety Report 11940388 (Version 1)
Quarter: 2016Q1

REPORT INFORMATION
  Report Type: Spontaneous
  Country: US (occurrence: US)
  Receive Date: 20160122
  Receipt Date: 20160122
  Transmission Date: 20160526
  Serious: No
  Sender: FDA-Public Use
  Company Number: US-DYAX CORP.-2015DX000183

PATIENT
  Age: 46 Year
  Sex: Female
  Weight: 79.45 kg

DRUGS (3)
  1. FIRAZYR [Concomitant]
     Active Substance: ICATIBANT ACETATE
     Indication: HEREDITARY ANGIOEDEMA
     Route: 058
  2. KALBITOR [Suspect]
     Active Substance: ECALLANTIDE
     Route: 058
     Dates: start: 2013
  3. KALBITOR [Suspect]
     Active Substance: ECALLANTIDE
     Indication: HEREDITARY ANGIOEDEMA
     Route: 058
     Dates: start: 20150415, end: 20150415

REACTIONS (6)
  - Sinusitis [Recovered/Resolved]
  - Cough [Recovering/Resolving]
  - Seasonal allergy [Unknown]
  - Sinus disorder [Recovering/Resolving]
  - Paranasal sinus hypersecretion [Recovering/Resolving]
  - Throat irritation [Recovering/Resolving]

NARRATIVE: CASE EVENT DATE: 201503
